FAERS Safety Report 4349630-6 (Version None)
Quarter: 2004Q2

REPORT INFORMATION
  Report Type: 
  Country: None (occurrence: None)
  Receive Date: 20040427
  Receipt Date: 20030307
  Transmission Date: 20050107
  Serious: No
  Sender: FDA-Public Use
  Company Number: 000477

PATIENT
  Age: 57 Year
  Sex: Male
  Weight: 72.6 kg

DRUGS (2)
  1. ZEVALIN [Suspect]
     Indication: NON-HODGKIN'S LYMPHOMA
     Dosage: 500 MG, SINGLE, RITUXAN DOSE 1, INTRAVENOUS SEE IMAGE
     Route: 042
     Dates: start: 20020604, end: 20020604
  2. ZEVALIN [Suspect]
     Indication: NON-HODGKIN'S LYMPHOMA
     Dosage: 500 MG, SINGLE, RITUXAN DOSE 1, INTRAVENOUS SEE IMAGE
     Route: 042
     Dates: start: 20020604, end: 20020604

REACTIONS (1)
  - THROMBOCYTOPENIA [None]
